FAERS Safety Report 5908676-4 (Version None)
Quarter: 2008Q4

REPORT INFORMATION
  Report Type: 
  Country: None (occurrence: None)
  Receive Date: 20081006
  Receipt Date: 20080926
  Transmission Date: 20090506
  Serious: Yes (Death, Hospitalization)
  Sender: FDA-Public Use
  Company Number: A0700115A

PATIENT
  Age: 59 Year
  Sex: Male
  Weight: 114.9 kg

DRUGS (2)
  1. TOPOTECAN [Suspect]
     Dosage: 1.1MGM2 PER DAY
     Route: 048
     Dates: start: 20071126, end: 20071207
  2. RADIATION [Suspect]
     Dosage: 3GY PER DAY
     Route: 061
     Dates: start: 20071126, end: 20071206

REACTIONS (5)
  - CONFUSIONAL STATE [None]
  - DISEASE PROGRESSION [None]
  - HEADACHE [None]
  - HYDROCEPHALUS [None]
  - LETHARGY [None]
